FAERS Safety Report 4834499-3 (Version None)
Quarter: 2005Q4

REPORT INFORMATION
  Report Type: 
  Country: None (occurrence: None)
  Receive Date: 20051122
  Receipt Date: 20041230
  Transmission Date: 20060501
  Serious: No
  Sender: FDA-Public Use
  Company Number: US-BRISTOL-MYERS SQUIBB COMPANY-12810230

PATIENT
  Age: 76 Year
  Sex: Female
  Weight: 93 kg

DRUGS (6)
  1. PRAVACHOL [Suspect]
     Indication: BLOOD CHOLESTEROL INCREASED
     Route: 048
     Dates: start: 20031008
  2. Q 10 [Concomitant]
  3. DIOVAN [Concomitant]
  4. LUTEIN [Concomitant]
  5. MULTI-VITAMINS [Concomitant]
  6. VITAMIN E [Concomitant]

REACTIONS (1)
  - DYSGEUSIA [None]
